FAERS Safety Report 12275954 (Version 1)
Quarter: 2016Q2

REPORT INFORMATION
  Report Type: Spontaneous
  Country: US (occurrence: US)
  Receive Date: 20160418
  Receipt Date: 20160418
  Transmission Date: 20160815
  Serious: No
  Sender: FDA-Public Use
  Company Number: US-ASTRAZENECA-2016SE26215

PATIENT
  Age: 75 Year
  Sex: Male
  Weight: 78.9 kg

DRUGS (2)
  1. SYMBICORT [Suspect]
     Active Substance: BUDESONIDE\FORMOTEROL FUMARATE DIHYDRATE
     Indication: CHRONIC OBSTRUCTIVE PULMONARY DISEASE
     Dosage: 160-4.5MCG, TWO PUFFS TWICE A DAY
     Route: 055
     Dates: start: 201602, end: 20160306
  2. SYMBICORT [Suspect]
     Active Substance: BUDESONIDE\FORMOTEROL FUMARATE DIHYDRATE
     Indication: CHRONIC OBSTRUCTIVE PULMONARY DISEASE
     Dosage: ONE PUFF TWICE A DAY
     Route: 055

REACTIONS (6)
  - Erythema [Unknown]
  - Secretion discharge [Recovering/Resolving]
  - Nausea [Recovering/Resolving]
  - Intentional product misuse [Unknown]
  - Chills [Not Recovered/Not Resolved]
  - Upper-airway cough syndrome [Recovering/Resolving]

NARRATIVE: CASE EVENT DATE: 2016
